FAERS Safety Report 8219911-4 (Version None)
Quarter: 2012Q1

REPORT INFORMATION
  Report Type: 
  Country: None (occurrence: None)
  Receive Date: 20120319
  Receipt Date: 20120308
  Transmission Date: 20120608
  Serious: Yes (Other)
  Sender: FDA-Public Use
  Company Number: TR-ASTRAZENECA-2012SE15884

PATIENT
  Age: 25 Year
  Sex: Female

DRUGS (2)
  1. BUDESONIDE [Suspect]
     Indication: AUTOIMMUNE HEPATITIS
     Route: 048
  2. AZATHIOPRINE [Concomitant]

REACTIONS (2)
  - CUSHINGOID [None]
  - HEPATIC ENZYME INCREASED [None]
